FAERS Safety Report 25941209 (Version 1)
Quarter: 2025Q4

REPORT INFORMATION
  Report Type: Spontaneous
  Country: US (occurrence: None)
  Receive Date: 20251019
  Receipt Date: 20251019
  Transmission Date: 20260118
  Serious: Yes (Other)
  Sender: FDA-CTU
  Company Number: None

PATIENT
  Age: 56 Year
  Sex: Female
  Weight: 67.5 kg

DRUGS (6)
  1. RECLAST [Suspect]
     Active Substance: ZOLEDRONIC ACID
     Indication: Osteoporosis
     Dates: start: 20251006, end: 20251006
  2. CALCIUM [Concomitant]
     Active Substance: CALCIUM
  3. VITAMIN D [Concomitant]
     Active Substance: VITAMIN D NOS
  4. DULOXETINE [Concomitant]
     Active Substance: DULOXETINE
  5. TYLENOL [Concomitant]
     Active Substance: ACETAMINOPHEN
  6. MOTRIN [Concomitant]
     Active Substance: IBUPROFEN

REACTIONS (6)
  - Influenza like illness [None]
  - Bedridden [None]
  - Rash scarlatiniform [None]
  - Musculoskeletal chest pain [None]
  - Pulmonary pain [None]
  - Dyspnoea [None]

NARRATIVE: CASE EVENT DATE: 20251008
